FAERS Safety Report 9869953 (Version 1)
Quarter: 2014Q1

REPORT INFORMATION
  Report Type: Spontaneous
  Country: US (occurrence: None)
  Receive Date: 20140203
  Receipt Date: 20140203
  Transmission Date: 20141002
  Serious: Yes (Other)
  Sender: FDA-Public Use
  Company Number: 7256542

PATIENT
  Age: 61 Year
  Sex: Female

DRUGS (1)
  1. EGRIFTA [Suspect]
     Indication: LIPODYSTROPHY ACQUIRED
     Dosage: 1 IN 1 D
     Route: 058
     Dates: start: 20130726

REACTIONS (4)
  - Blood glucose increased [None]
  - Tremor [None]
  - Dry mouth [None]
  - Night sweats [None]
